FAERS Safety Report 23418066 (Version 5)
Quarter: 2024Q3

REPORT INFORMATION
  Report Type: Spontaneous
  Country: US (occurrence: None)
  Receive Date: 20240118
  Receipt Date: 20240703
  Transmission Date: 20241017
  Serious: Yes (Hospitalization, Other)
  Sender: ASTRAZENECA
  Company Number: 2024A012416

PATIENT
  Age: 7 Month
  Sex: Female
  Weight: 2.1 kg

DRUGS (3)
  1. BEYFORTUS [Suspect]
     Active Substance: NIRSEVIMAB-ALIP
     Indication: Antiviral prophylaxis
     Dosage: 50 MG
     Dates: start: 20231213, end: 20231213
  2. BEYFORTUS [Suspect]
     Active Substance: NIRSEVIMAB-ALIP
     Indication: Antiviral prophylaxis
     Dosage: 50 MG
     Route: 030
     Dates: start: 20231216, end: 20231216
  3. PULMICORT TURBUHALER [Concomitant]
     Active Substance: BUDESONIDE
     Indication: Chronic respiratory disease
     Dosage: UNK

REACTIONS (4)
  - Respiratory syncytial virus infection [Unknown]
  - Respiratory distress [Unknown]
  - Respiratory syncytial virus test positive [Unknown]
  - Respiratory failure [Recovered/Resolved]

NARRATIVE: CASE EVENT DATE: 20231227
